FAERS Safety Report 5465467-9 (Version None)
Quarter: 2007Q3

REPORT INFORMATION
  Report Type: 
  Country: None (occurrence: None)
  Receive Date: 20070920
  Receipt Date: 20070913
  Transmission Date: 20080115
  Serious: Yes (Hospitalization)
  Sender: FDA-Public Use
  Company Number: 163-C5013-07070509

PATIENT
  Age: 64 Year
  Sex: Male
  Weight: 100.6985 kg

DRUGS (39)
  1. CC-5013 (LENALIDOMIDE) (CAPSULES) [Suspect]
     Indication: NEOPLASM
     Dosage: 20 MG, DAYS 1-21, ORAL
     Route: 048
     Dates: start: 20060118, end: 20070614
  2. DOCETAXEL [Suspect]
     Indication: NEOPLASM
     Dosage: 35  MG/M2, DAYS 1, 8, 15
     Dates: start: 20060118, end: 20070614
  3. LEUPROLIDE ACETATE [Suspect]
     Indication: PROSTATE CANCER
     Dosage: 30 MG,  INTRAMUSCULARLY EVERY 3-4 MONTHS, INTRAMUSCULAR
     Route: 030
     Dates: start: 20060201
  4. OMEPRAZOLE [Concomitant]
  5. INSULIN GLARGINE (INSULIN GLARGINE) [Concomitant]
  6. METFORMIN (METFORMIN) (TABLETS) [Concomitant]
  7. NOVOLOG [Concomitant]
  8. NAPROXEN (NAPROXEN) (TABLETS) [Concomitant]
  9. GABAPENTIN (GABAPENTIN) (CAPSULES) [Concomitant]
  10. LISINOPRIL [Concomitant]
  11. GLYNASE [Concomitant]
  12. AMITRIPTYLINE (AMITRIPTYLINE) (TABLETS) [Concomitant]
  13. LORATADINE [Concomitant]
  14. GLYBURIDE [Concomitant]
  15. AMBIEN [Concomitant]
  16. DECADRON [Concomitant]
  17. ATENOLOL [Concomitant]
  18. PLAVIX [Concomitant]
  19. EZETIMIBE (EZETIMIBE) (TABLETS) [Concomitant]
  20. ALKA SELTZER PLUS (SINE-OFF) [Concomitant]
  21. MAGNESIUM OXIDE (MAGNESIUM OXIDE) (TABLETS) [Concomitant]
  22. LANTUS [Concomitant]
  23. PRILOSEC [Concomitant]
  24. GLUCOPHAGE [Concomitant]
  25. ZOMETA [Concomitant]
  26. LASIX [Concomitant]
  27. ELAVIL [Concomitant]
  28. CLARITIN [Concomitant]
  29. ZETIA [Concomitant]
  30. ASPIRIN [Concomitant]
  31. TORSEMIDE [Concomitant]
  32. MORPHINE [Concomitant]
  33. ZOFRAN [Concomitant]
  34. LOPRESSOR [Concomitant]
  35. INSULIN (INSULIN) [Concomitant]
  36. TERBINAFINE (TERBINAFINE) (TABLETS) [Concomitant]
  37. DULCOLAX [Concomitant]
  38. LAMISIL [Concomitant]
  39. ACTIVIA SUPPLEMENTS [Concomitant]

REACTIONS (12)
  - ABSCESS [None]
  - CELLULITIS [None]
  - CYST [None]
  - FATIGUE [None]
  - HAEMATOCRIT DECREASED [None]
  - HAEMOGLOBIN DECREASED [None]
  - IMMUNOSUPPRESSION [None]
  - INJURY [None]
  - OEDEMA PERIPHERAL [None]
  - PERICARDIAL EFFUSION [None]
  - RED BLOOD CELL COUNT DECREASED [None]
  - SENSORY LOSS [None]
